FAERS Safety Report 4808191-5 (Version None)
Quarter: 2005Q4

REPORT INFORMATION
  Report Type: 
  Country: None (occurrence: None)
  Receive Date: 20051021
  Receipt Date: 20020826
  Transmission Date: 20060501
  Serious: Yes (Other)
  Sender: FDA-Public Use
  Company Number: US_020887436

PATIENT

DRUGS (1)
  1. ZYPREXA [Suspect]
     Dosage: 10 MG/DAY

REACTIONS (1)
  - PLATELET COUNT DECREASED [None]
